FAERS Safety Report 15887766 (Version 1)
Quarter: 2019Q1

REPORT INFORMATION
  Report Type: Other
  Country: DE (occurrence: DE)
  Receive Date: 20190130
  Receipt Date: 20190130
  Transmission Date: 20190417
  Serious: Yes (Hospitalization)
  Sender: FDA-Public Use
  Company Number: DE-EMCURE PHARMACEUTICALS LTD-2019-EPL-0049

PATIENT

DRUGS (5)
  1. PREDNISOLONE. [Concomitant]
     Active Substance: PREDNISOLONE
     Indication: RHEUMATOID ARTHRITIS
     Dosage: 5 MILLIGRAM, QD
     Route: 065
  2. STRONTIUM RANELATE [Suspect]
     Active Substance: STRONTIUM RANELATE
     Indication: OSTEOPOROSIS
     Dosage: UNK
     Route: 065
     Dates: start: 2007, end: 2009
  3. ZOLEDRONIC ACID [Suspect]
     Active Substance: ZOLEDRONIC ACID
     Indication: OSTEOPOROSIS
     Dosage: UNK
     Route: 065
     Dates: start: 200901, end: 201301
  4. RISEDRONATE SODIUM. [Suspect]
     Active Substance: RISEDRONATE SODIUM
     Indication: OSTEOPOROSIS
     Dosage: UNK
     Route: 065
     Dates: start: 2002, end: 2007
  5. DENOSUMAB [Suspect]
     Active Substance: DENOSUMAB
     Indication: OSTEOPOROSIS
     Dosage: UNK
     Route: 065
     Dates: start: 201301, end: 201503

REACTIONS (3)
  - Metaphyseal corner fracture [Recovered/Resolved]
  - Atypical fracture [Recovered/Resolved]
  - Tibia fracture [Recovered/Resolved]

NARRATIVE: CASE EVENT DATE: 201410
